FAERS Safety Report 7783201-4 (Version None)
Quarter: 2011Q3

REPORT INFORMATION
  Report Type: 
  Country: None (occurrence: None)
  Receive Date: 20110928
  Receipt Date: 20110623
  Transmission Date: 20111222
  Serious: Yes (Other)
  Sender: FDA-Public Use
  Company Number: GB-BAYER-2011-090889

PATIENT
  Sex: Female

DRUGS (1)
  1. QLAIRA FILM-COATED TABLETS [Suspect]
     Dosage: QD
     Dates: start: 20110401

REACTIONS (2)
  - MENSTRUATION DELAYED [None]
  - URINARY TRACT INFECTION [None]
